FAERS Safety Report 4439217-9 (Version None)
Quarter: 2004Q3

REPORT INFORMATION
  Report Type: 
  Country: None (occurrence: None)
  Receive Date: 20040831
  Receipt Date: 20040816
  Transmission Date: 20050211
  Serious: Yes (Other)
  Sender: FDA-Public Use
  Company Number: 201334

PATIENT
  Age: 43 Year
  Sex: Female
  Weight: 63.5036 kg

DRUGS (4)
  1. AVONEX [Suspect]
     Indication: MULTIPLE SCLEROSIS
     Dates: start: 20040711
  2. PROZAC [Concomitant]
  3. PROVIGIL [Concomitant]
  4. LIPITOR [Concomitant]

REACTIONS (3)
  - CONFUSIONAL STATE [None]
  - INFLUENZA LIKE ILLNESS [None]
  - INSOMNIA [None]
